FAERS Safety Report 4906211-0 (Version None)
Quarter: 2006Q1

REPORT INFORMATION
  Report Type: 
  Country: None (occurrence: None)
  Receive Date: 20060209
  Receipt Date: 20060127
  Transmission Date: 20060701
  Serious: Yes (Other)
  Sender: FDA-Public Use
  Company Number: PHBS2006JP01698

PATIENT
  Age: 27 Year
  Sex: Female

DRUGS (2)
  1. NEORAL [Suspect]
     Indication: SYSTEMIC LUPUS ERYTHEMATOSUS
     Dosage: 50 MG/D
     Route: 065
     Dates: start: 20060104, end: 20060117
  2. NEORAL [Suspect]
     Dosage: 100 MG/D
     Route: 065
     Dates: start: 20060118

REACTIONS (4)
  - HEPATIC FUNCTION ABNORMAL [None]
  - MEMORY IMPAIRMENT [None]
  - MENTAL IMPAIRMENT [None]
  - PSYCHIATRIC SYMPTOM [None]
